FAERS Safety Report 11592654 (Version 2)
Quarter: 2015Q4

REPORT INFORMATION
  Report Type: Spontaneous
  Country: FI (occurrence: FI)
  Receive Date: 20151005
  Receipt Date: 20151015
  Transmission Date: 20160304
  Serious: Yes (Death, Other)
  Sender: FDA-Public Use
  Company Number: FI-ASTELLAS-2015US030924

PATIENT
  Age: 73 Year
  Sex: Male

DRUGS (1)
  1. XTANDI [Suspect]
     Active Substance: ENZALUTAMIDE
     Indication: PROSTATE CANCER
     Dosage: NORMAL DOSE, UNKNOWN FREQ.
     Route: 065
     Dates: start: 20140522

REACTIONS (6)
  - Cerebrospinal fluid circulation disorder [Unknown]
  - Small cell lung cancer metastatic [Unknown]
  - Malignant neoplasm progression [Fatal]
  - Haemorrhage [Unknown]
  - Nervous system disorder [Unknown]
  - Aphasia [Unknown]

NARRATIVE: CASE EVENT DATE: 2014
